FAERS Safety Report 17010769 (Version 1)
Quarter: 2019Q4

REPORT INFORMATION
  Report Type: Spontaneous
  Country: US (occurrence: US)
  Receive Date: 20191001
  Receipt Date: 20191001
  Transmission Date: 20200122
  Serious: Yes (Other)
  Sender: FDA-Public Use
  Company Number: None

PATIENT
  Age: 76 Year
  Sex: Female

DRUGS (7)
  1. ESBRIET [Suspect]
     Active Substance: PIRFENIDONE
     Indication: IDIOPATHIC PULMONARY FIBROSIS
     Route: 048
     Dates: start: 20171206
  2. ATORVASTAIN [Concomitant]
     Active Substance: ATORVASTATIN
  3. CELEBREX [Concomitant]
     Active Substance: CELECOXIB
  4. ALLGRA [Concomitant]
  5. VITAMIN D3 [Concomitant]
     Active Substance: CHOLECALCIFEROL
  6. ASPIRIN. [Concomitant]
     Active Substance: ASPIRIN
  7. COQ10 [Concomitant]
     Active Substance: UBIDECARENONE

REACTIONS (1)
  - Cerebrovascular accident [None]
